FAERS Safety Report 6606655-5 (Version None)
Quarter: 2010Q1

REPORT INFORMATION
  Report Type: 
  Country: None (occurrence: None)
  Receive Date: 20100226
  Receipt Date: 20100217
  Transmission Date: 20100710
  Serious: Yes (Hospitalization)
  Sender: FDA-Public Use
  Company Number: KR-GILEAD-E2B_00000576

PATIENT
  Sex: Female
  Weight: 59 kg

DRUGS (9)
  1. HEPSERA [Suspect]
     Indication: HEPATITIS B
     Dosage: 10MG PER DAY
     Route: 048
     Dates: start: 20051215
  2. FOLIUM [Concomitant]
  3. LIVACT [Concomitant]
     Dates: start: 20050421
  4. URSODEOXYCHOLIC ACID [Concomitant]
     Dates: start: 20060116
  5. ZEFFIX [Concomitant]
     Dates: start: 20050421, end: 20060112
  6. LASIX [Concomitant]
     Dates: start: 20060113, end: 20060520
  7. COUGH SYRUP [Concomitant]
     Dates: start: 20060111, end: 20060111
  8. ROXAN [Concomitant]
     Dates: start: 20060116, end: 20060126
  9. ULCERMIN [Concomitant]
     Dates: start: 20060116, end: 20060126

REACTIONS (1)
  - ASCITES [None]
